FAERS Safety Report 8746646 (Version 2)
Quarter: 2012Q4

REPORT INFORMATION
  Report Type: 
  Country: US (occurrence: US)
  Receive Date: 20120827
  Receipt Date: 20120912
  Transmission Date: 20130627
  Serious: Yes (Other)
  Sender: FDA-Public Use
  Company Number: US-ASTELLAS-2012US006041

PATIENT
  Age: 56 None
  Sex: Male
  Weight: 102 kg

DRUGS (12)
  1. VESICARE [Suspect]
     Indication: BENIGN PROSTATIC HYPERPLASIA
     Dosage: 5 mg, UID/QD
     Route: 048
     Dates: start: 200912
  2. VESICARE [Suspect]
     Indication: URINARY TRACT OBSTRUCTION
  3. VESICARE [Suspect]
     Indication: LOWER URINARY TRACT SYMPTOMS
  4. VESICARE [Suspect]
     Indication: POLLAKIURIA
  5. VESICARE [Suspect]
     Indication: MICTURITION URGENCY
  6. VESICARE [Suspect]
     Indication: URGE INCONTINENCE
  7. ASPIRIN [Concomitant]
     Indication: PRODUCT USED FOR UNKNOWN INDICATION
     Dosage: 81 mg, UID/QD
     Route: 048
  8. BUPROPION HCL [Concomitant]
     Indication: PRODUCT USED FOR UNKNOWN INDICATION
     Dosage: 100 mg, bid
     Route: 048
  9. LORTAB                             /00607101/ [Concomitant]
     Indication: PAIN
     Dosage: 6-500 mg
     Route: 048
  10. METFORMIN [Concomitant]
     Indication: PRODUCT USED FOR UNKNOWN INDICATION
     Dosage: 1000 mg, bid
     Route: 048
  11. PRAVASTATIN [Concomitant]
     Indication: PRODUCT USED FOR UNKNOWN INDICATION
     Dosage: 20 mg, QHS
     Route: 048
  12. VITAMIN D3 [Concomitant]
     Indication: PRODUCT USED FOR UNKNOWN INDICATION
     Dosage: 2000 U, UID/QD
     Route: 048

REACTIONS (4)
  - Off label use [Recovering/Resolving]
  - Diabetic nephropathy [Recovering/Resolving]
  - Proteinuria [Recovering/Resolving]
  - Renal cyst [Unknown]
